FAERS Safety Report 7832930-2 (Version None)
Quarter: 2011Q4

REPORT INFORMATION
  Report Type: 
  Country: None (occurrence: None)
  Receive Date: 20111024
  Receipt Date: 20111018
  Transmission Date: 20120403
  Serious: Yes (Other)
  Sender: FDA-Public Use
  Company Number: GB-PFIZER INC-2011252790

PATIENT
  Sex: Male

DRUGS (1)
  1. GABAPENTIN [Suspect]
     Dosage: UNK

REACTIONS (18)
  - FEELING OF BODY TEMPERATURE CHANGE [None]
  - AGGRESSION [None]
  - IMPAIRED REASONING [None]
  - PAIN [None]
  - BLOOD GLUCOSE ABNORMAL [None]
  - ABNORMAL DREAMS [None]
  - CONVULSION [None]
  - DEPRESSION [None]
  - MOOD SWINGS [None]
  - NERVOUSNESS [None]
  - CONFUSIONAL STATE [None]
  - TINNITUS [None]
  - TREMOR [None]
  - INSOMNIA [None]
  - NAUSEA [None]
  - MENTAL IMPAIRMENT [None]
  - ANXIETY [None]
  - ABDOMINAL DISTENSION [None]
